FAERS Safety Report 24694095 (Version 1)
Quarter: 2024Q4

REPORT INFORMATION
  Report Type: Report from Study
  Country: US (occurrence: US)
  Receive Date: 20241204
  Receipt Date: 20241204
  Transmission Date: 20250115
  Serious: Yes (Other)
  Sender: TEVA
  Company Number: US-TEVA-VS-3270116

PATIENT
  Age: 65 Year
  Sex: Male

DRUGS (1)
  1. DIDANOSINE [Suspect]
     Active Substance: DIDANOSINE
     Indication: Antiretroviral therapy
     Dosage: FOR 30.6?MONTHS
     Route: 065

REACTIONS (2)
  - Toxicity to various agents [Unknown]
  - Retinal toxicity [Unknown]
